FAERS Safety Report 8481158-4 (Version None)
Quarter: 2012Q3

REPORT INFORMATION
  Report Type: 
  Country: None (occurrence: None)
  Receive Date: 20120702
  Receipt Date: 20120627
  Transmission Date: 20120928
  Serious: Yes (Other)
  Sender: FDA-Public Use
  Company Number: PHHY2009MX46110

PATIENT
  Sex: Female

DRUGS (1)
  1. ZOLEDRONOC ACID [Suspect]
     Indication: OSTEOPOROSIS
     Dosage: 5MG/100ML PER YEAR
     Route: 042
     Dates: start: 20090923

REACTIONS (3)
  - INTRAOCULAR PRESSURE INCREASED [None]
  - EYE DISCHARGE [None]
  - EYE PAIN [None]
